FAERS Safety Report 15491269 (Version 2)
Quarter: 2018Q4

REPORT INFORMATION
  Report Type: Spontaneous
  Country: DE (occurrence: DE)
  Receive Date: 20181012
  Receipt Date: 20181102
  Transmission Date: 20190205
  Serious: Yes (Other)
  Sender: FDA-Public Use
  Company Number: DE-BRISTOL-MYERS SQUIBB COMPANY-BMS-2018-093560

PATIENT
  Age: 37 Year
  Sex: Male
  Weight: 108 kg

DRUGS (5)
  1. VALSARTAN/AMLODIPINO [Suspect]
     Active Substance: AMLODIPINE\VALSARTAN
     Indication: PRODUCT USED FOR UNKNOWN INDICATION
     Dosage: 1 DF=10 MG/160 MG , QD
     Route: 065
  2. LEVOTHYROXINE SODIUM. [Suspect]
     Active Substance: LEVOTHYROXINE SODIUM
     Indication: PRODUCT USED FOR UNKNOWN INDICATION
     Route: 065
  3. METFORMIN HYDROCHLORIDE. [Suspect]
     Active Substance: METFORMIN HYDROCHLORIDE
     Indication: TYPE 2 DIABETES MELLITUS
     Dosage: 1000 MG, BID
     Route: 065
  4. GLICLAZIDE [Suspect]
     Active Substance: GLICLAZIDE
     Indication: PRODUCT USED FOR UNKNOWN INDICATION
     Dosage: 60 MG, UNK
     Route: 065
  5. NEBIVOLOL                          /01339102/ [Suspect]
     Active Substance: NEBIVOLOL
     Indication: PRODUCT USED FOR UNKNOWN INDICATION
     Route: 065

REACTIONS (15)
  - Oedema [Recovering/Resolving]
  - Blood cholesterol increased [Not Recovered/Not Resolved]
  - Hypertensive nephropathy [Unknown]
  - Intercapillary glomerulosclerosis [Unknown]
  - Oedema peripheral [Unknown]
  - Albumin urine present [Not Recovered/Not Resolved]
  - Renal tubular atrophy [Unknown]
  - Glycosuria [Unknown]
  - Hypertension [Recovering/Resolving]
  - Blood creatinine increased [Not Recovered/Not Resolved]
  - Blood triglycerides increased [Not Recovered/Not Resolved]
  - Diabetic nephropathy [Unknown]
  - Kidney fibrosis [Unknown]
  - Protein urine present [Not Recovered/Not Resolved]
  - Renal impairment [Not Recovered/Not Resolved]
